FAERS Safety Report 9027209 (Version 2)
Quarter: 2013Q1

REPORT INFORMATION
  Report Type: Report from Study
  Country: JP (occurrence: JP)
  Receive Date: 20130123
  Receipt Date: 20130327
  Transmission Date: 20140127
  Serious: Yes (Other)
  Sender: FDA-Public Use
  Company Number: JP-B.I. PHARMACEUTICALS,INC./RIDGEFIELD-2013-BI-01238NB

PATIENT
  Age: 52 Year
  Sex: Male
  Weight: 87.7 kg

DRUGS (7)
  1. PRADAXA [Suspect]
     Indication: ATRIAL FIBRILLATION
     Dosage: 300 MG
     Route: 048
     Dates: start: 20120908, end: 20121010
  2. PRADAXA [Suspect]
     Indication: PROPHYLAXIS
  3. PRADAXA [Suspect]
     Indication: PROPHYLAXIS
  4. ATORVASTATIN [Concomitant]
     Dosage: 5 MG
     Route: 048
  5. MICAMLO [Concomitant]
     Route: 048
     Dates: start: 20111111
  6. FLUITRAN [Concomitant]
     Dosage: 1 MG
     Route: 048
     Dates: start: 20120609
  7. BAYASPIRIN [Concomitant]
     Dosage: 100 MG
     Route: 048
     Dates: start: 20110810, end: 20120908

REACTIONS (2)
  - Cerebral infarction [Recovered/Resolved]
  - Drug ineffective [Unknown]
